FAERS Safety Report 9523019 (Version 1)
Quarter: 2013Q1

REPORT INFORMATION
  Report Type: Spontaneous
  Country: US (occurrence: None)
  Receive Date: 20130305
  Receipt Date: 20130305
  Transmission Date: 20140127
  Serious: Yes (Hospitalization)
  Sender: FDA-Public Use
  Company Number: 163-21880-12070365

PATIENT
  Age: 79 Year
  Sex: Male

DRUGS (4)
  1. REVLIMID (LENALIDOMIDE) (CAPSULES) [Suspect]
     Indication: PLASMA CELL MYELOMA
     Dosage: 10 MG, 1 IN 1 D, PO
     Route: 048
     Dates: start: 20120510
  2. MELPHALAN (MELPHANLAN) (TABLETS) [Concomitant]
  3. PREDNISONE (PREDNISONE) (UNKNOWN) [Concomitant]
  4. ZOLDRONIC ACID (ZOLDRONIC ACID) (UNKNOWN) [Concomitant]

REACTIONS (3)
  - Diarrhoea [None]
  - Decreased appetite [None]
  - Pyrexia [None]
